FAERS Safety Report 20074616 (Version 1)
Quarter: 2021Q4

REPORT INFORMATION
  Report Type: Spontaneous
  Country: ES (occurrence: ES)
  Receive Date: 20211116
  Receipt Date: 20211116
  Transmission Date: 20220303
  Serious: Yes (Hospitalization, Other)
  Sender: FDA-Public Use
  Company Number: ES-SA-SAC20211027000932

PATIENT
  Age: 39 Year
  Sex: Female
  Weight: 93 kg

DRUGS (8)
  1. PALBOCICLIB [Suspect]
     Active Substance: PALBOCICLIB
     Indication: Invasive ductal breast carcinoma
     Dosage: 125 MG, 1X/DAY (125 MG, QD)
     Route: 048
     Dates: start: 20210928
  2. PALBOCICLIB [Suspect]
     Active Substance: PALBOCICLIB
     Dosage: 125 MG, 1X/DAY  (125 MG, QD)
     Route: 048
  3. LETROZOLE [Suspect]
     Active Substance: LETROZOLE
     Indication: Invasive ductal breast carcinoma
     Dosage: 2.5 MG, 1X/DAY
     Route: 048
     Dates: start: 20210928
  4. LETROZOLE [Suspect]
     Active Substance: LETROZOLE
     Dosage: 200 MG, 1X/DAY
     Route: 048
  5. LETROZOLE [Suspect]
     Active Substance: LETROZOLE
     Dosage: 200 MG, 1X/DAY
     Route: 048
     Dates: start: 20210928, end: 20210928
  6. LETROZOLE [Suspect]
     Active Substance: LETROZOLE
     Dosage: 2.5 MG, 1X/DAY
     Route: 048
  7. GOSERELIN [Suspect]
     Active Substance: GOSERELIN
     Indication: Invasive ductal breast carcinoma
     Dosage: 3.6 MG,  ONCE EVERY 28 DAYS
     Route: 058
  8. GOSERELIN [Suspect]
     Active Substance: GOSERELIN
     Dosage: 3.6 MG,  ONCE EVERY 28 DAYS
     Route: 058
     Dates: start: 20210910, end: 20210910

REACTIONS (1)
  - Cerebrovascular accident [Not Recovered/Not Resolved]

NARRATIVE: CASE EVENT DATE: 20211023
